FAERS Safety Report 14245548 (Version 6)
Quarter: 2018Q1

REPORT INFORMATION
  Report Type: Report from Study
  Country: FR (occurrence: FR)
  Receive Date: 20171203
  Receipt Date: 20180314
  Transmission Date: 20180508
  Serious: Yes (Other)
  Sender: FDA-Public Use
  Company Number: FR-AMGEN-FRACT2017178766

PATIENT
  Age: 52 Year
  Sex: Female

DRUGS (4)
  1. DENOSUMAB [Suspect]
     Active Substance: DENOSUMAB
     Indication: BREAST CANCER
     Dosage: 120 MG, UNK
     Route: 058
     Dates: start: 20120626, end: 20140401
  2. DENOSUMAB [Suspect]
     Active Substance: DENOSUMAB
     Dosage: UNK
     Route: 058
     Dates: start: 20150818
  3. ARIMIDEX [Concomitant]
     Active Substance: ANASTROZOLE
     Dosage: 20 MG, QD
     Dates: start: 20121206
  4. CACIT D3 [Concomitant]
     Active Substance: CALCIUM\CHOLECALCIFEROL
     Dosage: 1 UNK, QD
     Dates: start: 20121206, end: 20180109

REACTIONS (1)
  - Primary sequestrum [Recovered/Resolved]

NARRATIVE: CASE EVENT DATE: 20150127
